FAERS Safety Report 6364234-1 (Version None)
Quarter: 2009Q3

REPORT INFORMATION
  Report Type: 
  Country: None (occurrence: None)
  Receive Date: 20090919
  Receipt Date: 20090715
  Transmission Date: 20100115
  Serious: Yes (Other)
  Sender: FDA-Public Use
  Company Number: US-ABBOTT-09P-163-0585978-00

PATIENT
  Sex: Female
  Weight: 61.29 kg

DRUGS (3)
  1. HUMIRA [Suspect]
     Indication: CROHN'S DISEASE
     Route: 058
     Dates: start: 20070701
  2. LORTAB [Concomitant]
     Indication: PAIN
     Route: 048
  3. LORTAB [Concomitant]
     Indication: CROHN'S DISEASE

REACTIONS (5)
  - CATARACT [None]
  - DRUG DOSE OMISSION [None]
  - HYPOAESTHESIA [None]
  - PAIN IN EXTREMITY [None]
  - RASH [None]
